FAERS Safety Report 23291910 (Version 1)
Quarter: 2023Q4

REPORT INFORMATION
  Report Type: Spontaneous
  Country: US (occurrence: US)
  Receive Date: 20231213
  Receipt Date: 20231213
  Transmission Date: 20240110
  Serious: Yes (Life-Threatening, Hospitalization, Other)
  Sender: FDA-Public Use
  Company Number: US-MLMSERVICE-20231122-4679982-1

PATIENT
  Age: 64 Year
  Sex: Female

DRUGS (1)
  1. AMIODARONE [Suspect]
     Active Substance: AMIODARONE
     Indication: Atrial flutter
     Dosage: UNKNOWN
     Route: 065

REACTIONS (2)
  - Hypothyroidism [Recovering/Resolving]
  - Decompensated hypothyroidism [Recovering/Resolving]
